FAERS Safety Report 9348078 (Version 2)
Quarter: 2013Q3

REPORT INFORMATION
  Report Type: Spontaneous
  Country: US (occurrence: US)
  Receive Date: 20130614
  Receipt Date: 20130711
  Transmission Date: 20140515
  Serious: No
  Sender: FDA-Public Use
  Company Number: US-BAYER-2013-073149

PATIENT
  Age: 72 Year
  Sex: Male
  Weight: 88 kg

DRUGS (4)
  1. ALEVE GELCAPS [Suspect]
     Indication: PAIN
     Dosage: 1 DF, PRN
     Dates: start: 2012
  2. PREDNISONE [Concomitant]
  3. SIMVASTATIN [Concomitant]
  4. TYLENOL [PARACETAMOL] [Concomitant]

REACTIONS (1)
  - Constipation [None]
